FAERS Safety Report 14091926 (Version 2)
Quarter: 2017Q4

REPORT INFORMATION
  Report Type: Spontaneous
  Country: BR (occurrence: BR)
  Receive Date: 20171016
  Receipt Date: 20171023
  Transmission Date: 20180321
  Serious: Yes (Other)
  Sender: FDA-Public Use
  Company Number: BR-ABBVIE-17P-020-2129133-00

PATIENT
  Sex: Male

DRUGS (5)
  1. HIDANTAL [Concomitant]
     Active Substance: PHENYTOIN SODIUM
     Indication: EPILEPSY
     Route: 048
  2. DEPAKENE [Suspect]
     Active Substance: VALPROIC ACID
     Route: 065
  3. DEPAKENE [Suspect]
     Active Substance: VALPROIC ACID
     Indication: EPILEPSY
     Route: 065
  4. SOMALIUM [Concomitant]
     Active Substance: BROMAZEPAM
     Indication: EPILEPSY
     Dosage: AT NIGHT
     Route: 048
  5. FLUOXETINE [Concomitant]
     Active Substance: FLUOXETINE HYDROCHLORIDE
     Indication: EPILEPSY
     Dosage: AT NIGHT

REACTIONS (3)
  - Seizure [Recovered/Resolved]
  - Drug ineffective [Unknown]
  - Product quality issue [Unknown]
